FAERS Safety Report 7009969-2 (Version None)
Quarter: 2010Q3

REPORT INFORMATION
  Report Type: 
  Country: None (occurrence: None)
  Receive Date: 20100923
  Receipt Date: 20100910
  Transmission Date: 20110219
  Serious: Yes (Other)
  Sender: FDA-Public Use
  Company Number: US-WATSON-2010-12356

PATIENT

DRUGS (1)
  1. IBUPROFEN TABLETS [Suspect]
     Indication: PRODUCT USED FOR UNKNOWN INDICATION
     Dosage: }20 G, SINGLE
     Route: 048

REACTIONS (2)
  - MULTI-ORGAN FAILURE [None]
  - OVERDOSE [None]
